FAERS Safety Report 17010894 (Version 1)
Quarter: 2019Q4

REPORT INFORMATION
  Report Type: Spontaneous
  Country: US (occurrence: US)
  Receive Date: 20191001
  Receipt Date: 20191001
  Transmission Date: 20200122
  Serious: Yes (Other)
  Sender: FDA-Public Use
  Company Number: None

PATIENT
  Age: 78 Year
  Sex: Female
  Weight: 60.78 kg

DRUGS (9)
  1. RIFAMPIN 300 MG [Suspect]
     Active Substance: RIFAMPIN
     Indication: URINARY TRACT INFECTION
     Dosage: ?          QUANTITY:14 PILLS;?
     Route: 048
     Dates: start: 20190311, end: 20190318
  2. LYRICA [Concomitant]
     Active Substance: PREGABALIN
  3. MAGNESIUM [Concomitant]
     Active Substance: MAGNESIUM
  4. BABY ASPRIN [Concomitant]
     Active Substance: ASPIRIN
  5. VITAMIN D2 [Concomitant]
     Active Substance: ERGOCALCIFEROL
  6. MIRALAX (P.E.G.) [Concomitant]
  7. DUEXIS [Concomitant]
     Active Substance: FAMOTIDINE\IBUPROFEN
  8. AREDS 2 [Concomitant]
     Active Substance: MINERALS\VITAMINS
  9. MULTIVITAMIN [Concomitant]
     Active Substance: VITAMINS

REACTIONS (7)
  - Muscle tightness [None]
  - Tremor [None]
  - Disturbance in attention [None]
  - Urinary tract infection [None]
  - Muscular weakness [None]
  - Myocardial infarction [None]
  - Hyperventilation [None]

NARRATIVE: CASE EVENT DATE: 201903
